FAERS Safety Report 19900768 (Version 3)
Quarter: 2025Q3

REPORT INFORMATION
  Report Type: Spontaneous
  Country: EU (occurrence: EU)
  Receive Date: 20210930
  Receipt Date: 20250803
  Transmission Date: 20251021
  Serious: Yes (Hospitalization)
  Sender: ALEXION PHARMACEUTICALS
  Company Number: 2021A737515

PATIENT
  Age: 50 Year
  Sex: Female
  Weight: 85 kg

DRUGS (9)
  1. FULVESTRANT [Suspect]
     Active Substance: FULVESTRANT
     Indication: Breast cancer
     Dosage: CYCLIC, EVERY 4 WEEKS,LAST ADMINISTERED ON 08-OCT-2020, FREQUENCY: Q4WK
     Dates: start: 20200813
  2. FULVESTRANT [Suspect]
     Active Substance: FULVESTRANT
  3. PALBOCICLIB [Suspect]
     Active Substance: PALBOCICLIB
     Indication: Breast cancer
     Dosage: DURATION 2 MONTHS 1 DAY, LAST ADMINISTERED ON 14-OCT-2020
     Dates: start: 20200814
  4. IBANDRONIC ACID [Suspect]
     Active Substance: IBANDRONIC ACID
     Indication: Metastases to bone
     Dosage: 6 MILLIGRAM, UNK, FREQUENCY: Q4WK
     Dates: start: 20200813
  5. PANTOPRAZOLE [Concomitant]
     Active Substance: PANTOPRAZOLE
     Indication: Nausea
     Route: 065
  6. Codein phosphas [Concomitant]
     Indication: Cough
     Route: 065
  7. LEVOTHYROXINE SODIUM [Concomitant]
     Active Substance: LEVOTHYROXINE SODIUM
     Indication: Hypothyroidism
     Route: 065
  8. IBUPROFEN [Concomitant]
     Active Substance: IBUPROFEN
     Indication: Pain
     Route: 065
  9. ACETAMINOPHEN [Concomitant]
     Active Substance: ACETAMINOPHEN
     Indication: Cough

REACTIONS (4)
  - Interstitial lung disease [Recovered/Resolved]
  - Oesophageal stenosis [Recovered/Resolved]
  - Dysphagia [Recovered/Resolved]
  - Faecaloma [Recovered/Resolved]

NARRATIVE: CASE EVENT DATE: 20201015
